FAERS Safety Report 5696266-0 (Version None)
Quarter: 2008Q2

REPORT INFORMATION
  Report Type: 
  Country: None (occurrence: None)
  Receive Date: 20080407
  Receipt Date: 20080328
  Transmission Date: 20081010
  Serious: Yes (Other)
  Sender: FDA-Public Use
  Company Number: US-PFIZER INC-2008028093

PATIENT
  Age: 38 Year
  Sex: Male

DRUGS (2)
  1. DILANTIN [Suspect]
  2. PHENYTOIN [Suspect]
     Dates: start: 20071101, end: 20080326

REACTIONS (6)
  - ANTICONVULSANT DRUG LEVEL DECREASED [None]
  - BLOOD IRON DECREASED [None]
  - CONVULSION [None]
  - DYSPHAGIA [None]
  - GASTROOESOPHAGEAL REFLUX DISEASE [None]
  - OESOPHAGEAL HAEMORRHAGE [None]
